FAERS Safety Report 7512477-3 (Version None)
Quarter: 2011Q2

REPORT INFORMATION
  Report Type: 
  Country: None (occurrence: None)
  Receive Date: 20110531
  Receipt Date: 20110519
  Transmission Date: 20111010
  Serious: Yes (Other)
  Sender: FDA-Public Use
  Company Number: CH-ROCHE-778249

PATIENT

DRUGS (2)
  1. PEGINTERFERON ALFA-2A [Suspect]
     Indication: HEPATITIS C
     Route: 058
  2. RIBAVIRIN [Suspect]
     Indication: HEPATITIS C
     Route: 048

REACTIONS (6)
  - DERMATITIS [None]
  - PORPHYRIA NON-ACUTE [None]
  - RASH GENERALISED [None]
  - ECZEMA [None]
  - RASH PAPULAR [None]
  - DERMATITIS BULLOUS [None]
